FAERS Safety Report 8531481-X (Version None)
Quarter: 2012Q3

REPORT INFORMATION
  Report Type: 
  Country: None (occurrence: None)
  Receive Date: 20120723
  Receipt Date: 20120712
  Transmission Date: 20120928
  Serious: Yes (Other)
  Sender: FDA-Public Use
  Company Number: JP-VERTEX PHARMACEUTICALS INC.-AE-2012-007913

PATIENT
  Age: 60 Year
  Sex: Male

DRUGS (16)
  1. TELAVIC (TELAPREVIR) [Suspect]
     Route: 048
     Dates: start: 20120419, end: 20120425
  2. PEGINTERFERON ALFA-2B [Concomitant]
     Route: 058
     Dates: start: 20120621
  3. TELAVIC (TELAPREVIR) [Suspect]
     Indication: HEPATITIS C
     Route: 048
     Dates: start: 20120405, end: 20120418
  4. PEGINTERFERON ALFA-2B [Concomitant]
     Route: 058
     Dates: start: 20120517
  5. URSO 250 [Concomitant]
     Route: 048
  6. PEGINTERFERON ALFA-2B [Concomitant]
     Route: 058
     Dates: start: 20120517, end: 20120530
  7. PEGINTERFERON ALFA-2B [Concomitant]
     Route: 058
     Dates: start: 20120531, end: 20120620
  8. TELAVIC (TELAPREVIR) [Suspect]
     Route: 048
     Dates: start: 20120510, end: 20120627
  9. RIBAVIRIN [Concomitant]
     Indication: HEPATITIS C
     Route: 048
     Dates: start: 20120405, end: 20120418
  10. PEGINTERFERON ALFA-2B [Concomitant]
     Route: 058
     Dates: start: 20120510, end: 20120516
  11. RIBAVIRIN [Concomitant]
     Route: 048
     Dates: start: 20120510, end: 20120627
  12. PEGINTERFERON ALFA-2B [Concomitant]
     Indication: HEPATITIS C
     Route: 058
     Dates: start: 20120405, end: 20120425
  13. OLMESARTAN MEDOXOMIL [Concomitant]
     Route: 048
  14. RIBAVIRIN [Concomitant]
     Route: 048
     Dates: start: 20120419, end: 20120425
  15. RIBAVIRIN [Concomitant]
     Route: 048
     Dates: start: 20120628
  16. PEGINTERFERON ALFA-2B [Concomitant]
     Route: 058
     Dates: end: 20120516

REACTIONS (2)
  - WHITE BLOOD CELL COUNT DECREASED [None]
  - PLATELET COUNT DECREASED [None]
